FAERS Safety Report 6845054-8 (Version None)
Quarter: 2010Q3

REPORT INFORMATION
  Report Type: 
  Country: None (occurrence: None)
  Receive Date: 20100715
  Receipt Date: 20070814
  Transmission Date: 20110219
  Serious: No
  Sender: FDA-Public Use
  Company Number: US-PFIZER INC-2007068133

PATIENT
  Sex: Female
  Weight: 66.818 kg

DRUGS (6)
  1. CHANTIX [Suspect]
     Indication: SMOKING CESSATION THERAPY
     Dates: start: 20070810
  2. HYDROCHLOROTHIAZIDE [Concomitant]
  3. POTASSIUM CHLORIDE [Concomitant]
  4. HYDROXYZINE PAMOATE [Concomitant]
  5. SIMVASTATIN [Concomitant]
  6. AMLODIPINE BESYLATE AND BENAZEPRIL HCL [Concomitant]

REACTIONS (6)
  - ABDOMINAL DISCOMFORT [None]
  - NAUSEA [None]
  - POLLAKIURIA [None]
  - POOR QUALITY SLEEP [None]
  - SLUGGISHNESS [None]
  - SOMNOLENCE [None]
